FAERS Safety Report 9369867 (Version 1)
Quarter: 2013Q2

REPORT INFORMATION
  Report Type: Report from Study
  Country: DE (occurrence: DE)
  Receive Date: 20130626
  Receipt Date: 20130626
  Transmission Date: 20140414
  Serious: Yes (Death)
  Sender: FDA-Public Use
  Company Number: DE-BRISTOL-MYERS SQUIBB COMPANY-19037662

PATIENT
  Age: 75 Year
  Sex: Male
  Weight: 80 kg

DRUGS (5)
  1. ERBITUX SOLN FOR INF [Suspect]
     Indication: COLORECTAL CANCER METASTATIC
     Dosage: 7MY13-7MY13?14MAY-4JUN13 250MG/M2 ONCE IN 1WK
     Route: 042
     Dates: start: 20130507, end: 20130604
  2. 5-FLUOROURACIL [Concomitant]
     Indication: COLORECTAL CANCER METASTATIC
     Dates: start: 20130409, end: 20130604
  3. OXALIPLATIN [Concomitant]
     Indication: COLORECTAL CANCER METASTATIC
     Dates: start: 20130409, end: 20130604
  4. FOLINIC ACID [Concomitant]
     Indication: COLORECTAL CANCER METASTATIC
     Dates: start: 20130409, end: 20130604
  5. GRANISETRON [Concomitant]
     Indication: PREMEDICATION
     Dates: start: 20130507, end: 20130514

REACTIONS (1)
  - Myocardial infarction [Fatal]
